FAERS Safety Report 5631988-9 (Version None)
Quarter: 2008Q1

REPORT INFORMATION
  Report Type: 
  Country: None (occurrence: None)
  Receive Date: 20080220
  Receipt Date: 20080213
  Transmission Date: 20080703
  Serious: Yes (Hospitalization)
  Sender: FDA-Public Use
  Company Number: FR-ELI_LILLY_AND_COMPANY-FR200707004291

PATIENT
  Sex: Male
  Weight: 65 kg

DRUGS (2)
  1. CIALIS [Suspect]
     Indication: ERECTILE DYSFUNCTION
     Dosage: 10 MG, AS NEEDED
     Route: 048
     Dates: start: 20040101, end: 20070801
  2. STILNOX [Concomitant]
     Indication: SLEEP DISORDER
     Dosage: 10 MG, AS NEEDED
     Route: 048
     Dates: start: 20010101

REACTIONS (5)
  - DYSAESTHESIA [None]
  - FLUSHING [None]
  - HAEMORRHAGIC STROKE [None]
  - MIGRAINE [None]
  - ORAL DYSAESTHESIA [None]
